FAERS Safety Report 18895662 (Version 1)
Quarter: 2021Q1

REPORT INFORMATION
  Report Type: Spontaneous
  Country: NL (occurrence: NL)
  Receive Date: 20210216
  Receipt Date: 20210216
  Transmission Date: 20210420
  Serious: Yes (Death, Other)
  Sender: FDA-Public Use
  Company Number: NL-AUROBINDO-AUR-APL-2021-005818

PATIENT
  Age: 90 Year
  Sex: Female
  Weight: 56 kg

DRUGS (5)
  1. MIDAZOLAM 5 MG/ML SOLUTION FOR INJECTION [Suspect]
     Active Substance: MIDAZOLAM
     Indication: PALLIATIVE CARE
     Dosage: 10 MILLIGRAM, EVERY FOUR HOUR (6X DAILY 10MG)
     Route: 065
     Dates: start: 20210127
  2. PARACETAMOL 1000 MG SUPPOSITORY [Suspect]
     Active Substance: ACETAMINOPHEN
     Indication: ILEUS
     Dosage: 1000 MILLIGRAM, FOUR TIMES/DAY (1000MG 4X DAILY)
     Route: 065
     Dates: start: 20210125
  3. COVID?19 VACCINE NOS. [Suspect]
     Active Substance: COVID-19 VACCINE NOS
     Indication: COVID-19 IMMUNISATION
     Dosage: 1 DOSAGE FORM
     Route: 065
     Dates: start: 20210127
  4. MORPHINE [Suspect]
     Active Substance: MORPHINE
     Indication: ILEUS
     Dosage: 1 DOSAGE FORM (INJECTION LIQUID, 10 MG / ML (MILLIGRAMS PER MILLILITER))
     Route: 065
     Dates: start: 20210125
  5. MORPHINE [Suspect]
     Active Substance: MORPHINE
     Indication: PNEUMONIA

REACTIONS (1)
  - Death [Fatal]

NARRATIVE: CASE EVENT DATE: 20210202
